FAERS Safety Report 5066267-4 (Version None)
Quarter: 2006Q3

REPORT INFORMATION
  Report Type: 
  Country: None (occurrence: None)
  Receive Date: 20060731
  Receipt Date: 20060731
  Transmission Date: 20061208
  Serious: Yes (Life-Threatening, Hospitalization, Other)
  Sender: FDA-Public Use
  Company Number: None

PATIENT
  Age: 21 Year
  Sex: Male
  Weight: 40.82 kg

DRUGS (9)
  1. AMIODARONE HCL [Suspect]
     Indication: VENTRICULAR ARRHYTHMIA
     Dosage: 200 MG DAILY PO
     Route: 048
     Dates: start: 19990101
  2. LASIX [Concomitant]
  3. FERROUS SULFATE TAB [Concomitant]
  4. FOLIC ACID [Concomitant]
  5. BIDIL [Concomitant]
  6. COUMADIN [Concomitant]
  7. AMIODARONE HCL [Concomitant]
  8. TUMS [Concomitant]
  9. MULTI-VITAMIN [Concomitant]

REACTIONS (3)
  - BONE MARROW FAILURE [None]
  - DEFIBRILLATION THRESHOLD INCREASED [None]
  - WHITE BLOOD CELL COUNT DECREASED [None]
